FAERS Safety Report 18786638 (Version 1)
Quarter: 2021Q1

REPORT INFORMATION
  Report Type: Spontaneous
  Country: US (occurrence: US)
  Receive Date: 20210126
  Receipt Date: 20210126
  Transmission Date: 20210419
  Serious: No
  Sender: FDA-Public Use
  Company Number: US-009507513-2012USA012044

PATIENT
  Age: 78 Year
  Sex: Male

DRUGS (1)
  1. REBETOL [Suspect]
     Active Substance: RIBAVIRIN
     Indication: HEPATITIS E
     Dosage: 600 MILLIGRAM, BID; 12 WEEKS
     Route: 048

REACTIONS (1)
  - Product use in unapproved indication [Unknown]
